FAERS Safety Report 19686841 (Version 1)
Quarter: 2021Q3

REPORT INFORMATION
  Report Type: Spontaneous
  Country: FR (occurrence: FR)
  Receive Date: 20210811
  Receipt Date: 20210811
  Transmission Date: 20211014
  Serious: Yes (Hospitalization)
  Sender: FDA-Public Use
  Company Number: FR-MYLANLABS-2021M1048987

PATIENT
  Age: 1 Day
  Sex: Female

DRUGS (4)
  1. AZACTAM [Suspect]
     Active Substance: AZTREONAM
     Indication: PROPHYLAXIS
     Dosage: 6 GRAM
     Route: 064
     Dates: start: 20210127, end: 20210202
  2. CEFTAZIDIME. [Suspect]
     Active Substance: CEFTAZIDIME
     Indication: INFECTION
     Dosage: UNK
     Route: 064
     Dates: start: 20200119, end: 20210127
  3. OMEPRAZOLE. [Suspect]
     Active Substance: OMEPRAZOLE
     Indication: PROPHYLAXIS
     Dosage: 80 MILLIGRAM
     Route: 064
     Dates: end: 20210202
  4. CREON [Suspect]
     Active Substance: PANCRELIPASE AMYLASE\PANCRELIPASE LIPASE\PANCRELIPASE PROTEASE
     Indication: PANCREATIC FAILURE
     Dosage: 11 ? 16G?L PAR JOUR
     Route: 064
     Dates: end: 20210202

REACTIONS (2)
  - Pulmonary haemorrhage [Not Recovered/Not Resolved]
  - Foetal exposure during pregnancy [Recovered/Resolved]

NARRATIVE: CASE EVENT DATE: 20210202
